FAERS Safety Report 13083577 (Version 1)
Quarter: 2017Q1

REPORT INFORMATION
  Report Type: Spontaneous
  Country: FR (occurrence: FR)
  Receive Date: 20170104
  Receipt Date: 20170104
  Transmission Date: 20170428
  Serious: Yes (Life-Threatening)
  Sender: FDA-Public Use
  Company Number: FR-ORION CORPORATION ORION PHARMA-TREX2017-0022

PATIENT
  Age: 74 Year
  Sex: Female

DRUGS (13)
  1. DIAMICRON [Suspect]
     Active Substance: GLICLAZIDE
     Indication: TYPE 2 DIABETES MELLITUS
     Dosage: STRENGTH: 60 MG
     Route: 048
     Dates: end: 20161209
  2. GABAPENTIN. [Concomitant]
     Active Substance: GABAPENTIN
     Route: 065
  3. CRESTOR [Concomitant]
     Active Substance: ROSUVASTATIN CALCIUM
     Route: 065
  4. KARDEGIC [Suspect]
     Active Substance: ASPIRIN LYSINE
     Indication: CEREBROVASCULAR ACCIDENT
     Dosage: STRENGTH: 160 MG
     Route: 065
     Dates: end: 20161209
  5. LASILIX [Concomitant]
     Active Substance: FUROSEMIDE
     Route: 065
  6. LERCANIDIPINE HYDROCHLORIDE [Concomitant]
     Active Substance: LERCANIDIPINE HYDROCHLORIDE
     Route: 065
  7. ADENURIC [Suspect]
     Active Substance: FEBUXOSTAT
     Indication: GOUT
     Dosage: STRENGTH: 80 MG
     Route: 048
     Dates: end: 20161209
  8. SPECIAFOLDINE [Concomitant]
     Active Substance: FOLIC ACID
  9. FRAGMINE [Suspect]
     Active Substance: DALTEPARIN SODIUM
     Indication: CEREBROVASCULAR ACCIDENT
     Dosage: STRENGTH: 2 500 U.I, 0.2 ML SOLUTION
     Route: 065
     Dates: start: 201611, end: 20161214
  10. IMETH [Suspect]
     Active Substance: METHOTREXATE SODIUM
     Indication: RHEUMATOID ARTHRITIS
     Dosage: STRENGTH: 10 MG
     Route: 048
     Dates: start: 2015, end: 20151209
  11. BISOCE [Suspect]
     Active Substance: BISOPROLOL
     Indication: HYPERTENSION
     Dosage: STRENGTH: 2.5 MG
     Route: 048
     Dates: end: 20161211
  12. MOLSIDOMINE [Concomitant]
     Active Substance: MOLSIDOMINE
     Route: 065
  13. EUPRESSYL [Suspect]
     Active Substance: URAPIDIL
     Indication: HYPERTENSION
     Dosage: SRENGTH: 30 MG
     Route: 048
     Dates: end: 20161211

REACTIONS (6)
  - Gastrointestinal haemorrhage [Recovered/Resolved]
  - Peptic ulcer [Recovering/Resolving]
  - Cerebrovascular accident [Unknown]
  - Rash [Unknown]
  - Urticaria [Unknown]
  - Haemorrhagic anaemia [Recovered/Resolved]

NARRATIVE: CASE EVENT DATE: 201611
